FAERS Safety Report 4989116-9 (Version None)
Quarter: 2006Q1

REPORT INFORMATION
  Report Type: 
  Country: None (occurrence: None)
  Receive Date: 20060309
  Receipt Date: 20051017
  Transmission Date: 20060701
  Serious: Yes (Other)
  Sender: FDA-Public Use
  Company Number: 421742

PATIENT

DRUGS (2)
  1. ISOTRETINOIN [Suspect]
     Indication: ACNE
     Dosage: ORAL
     Route: 048
     Dates: start: 20050801, end: 20050923
  2. GRACIAL (DESOGESTREL/ETHINYL ESTRADIOL) [Concomitant]

REACTIONS (1)
  - PREGNANCY [None]
